FAERS Safety Report 8224165-9 (Version None)
Quarter: 2012Q1

REPORT INFORMATION
  Report Type: 
  Country: None (occurrence: None)
  Receive Date: 20120321
  Receipt Date: 20120315
  Transmission Date: 20120608
  Serious: Yes (Hospitalization)
  Sender: FDA-Public Use
  Company Number: US-MEDIMMUNE-MEDI-0014628

PATIENT
  Sex: Male

DRUGS (2)
  1. SYNAGIS [Suspect]
     Dates: start: 20120112, end: 20120112
  2. SYNAGIS [Suspect]
     Dates: start: 20120217, end: 20120217

REACTIONS (2)
  - TACHYCARDIA [None]
  - PNEUMONIA [None]
